FAERS Safety Report 5110886-3 (Version None)
Quarter: 2006Q3

REPORT INFORMATION
  Report Type: 
  Country: None (occurrence: None)
  Receive Date: 20060919
  Receipt Date: 20060911
  Transmission Date: 20061208
  Serious: Yes (Hospitalization)
  Sender: FDA-Public Use
  Company Number: 2006VX000599

PATIENT
  Age: 66 Year
  Sex: Male
  Weight: 55 kg

DRUGS (7)
  1. INTERFERON ALFACON-1 (INTERFERON ALFACON-1) (9 UG) [Suspect]
     Indication: HEPATITIS C
     Dosage: SEE IMAGE
     Route: 058
     Dates: start: 20060116, end: 20060129
  2. INTERFERON ALFACON-1 (INTERFERON ALFACON-1) (9 UG) [Suspect]
     Indication: HEPATITIS C
     Dosage: SEE IMAGE
     Route: 058
     Dates: start: 20060131, end: 20060527
  3. GLYCYRRHIZINATE POTASSIUM [Concomitant]
  4. PURSENNID [Concomitant]
  5. CINAL [Concomitant]
  6. JUVELA [Concomitant]
  7. URSODEOXYCHOLIC ACID [Concomitant]

REACTIONS (11)
  - AGGRESSION [None]
  - BLOOD PRESSURE INCREASED [None]
  - CEREBELLAR INFARCTION [None]
  - CEREBRAL INFARCTION [None]
  - CONVULSION [None]
  - DEPRESSED LEVEL OF CONSCIOUSNESS [None]
  - DIZZINESS [None]
  - GLOSSOPTOSIS [None]
  - PYREXIA [None]
  - RESPIRATORY DISORDER [None]
  - WHITE BLOOD CELL COUNT DECREASED [None]
